FAERS Safety Report 5733457-4 (Version None)
Quarter: 2008Q2

REPORT INFORMATION
  Report Type: 
  Country: None (occurrence: None)
  Receive Date: 20080509
  Receipt Date: 20080418
  Transmission Date: 20081010
  Serious: Yes (Hospitalization, Other)
  Sender: FDA-Public Use
  Company Number: GB-GILEAD-2008-0016178

PATIENT
  Sex: Male

DRUGS (4)
  1. VIREAD [Suspect]
     Indication: HEPATITIS B
  2. HEPSERA [Suspect]
  3. ENTECAVIR [Suspect]
     Indication: HEPATITIS B
  4. LAMIVUDINE [Suspect]

REACTIONS (3)
  - DRUG INEFFECTIVE [None]
  - PHARYNGEAL OEDEMA [None]
  - RASH MACULO-PAPULAR [None]
